FAERS Safety Report 11854205 (Version 12)
Quarter: 2016Q2

REPORT INFORMATION
  Report Type: Spontaneous
  Country: US (occurrence: US)
  Receive Date: 20151220
  Receipt Date: 20160527
  Transmission Date: 20160815
  Serious: Yes (Other)
  Sender: FDA-Public Use
  Company Number: US-009507513-1512USA004556

PATIENT
  Age: 21 Year
  Sex: Female
  Weight: 72.56 kg

DRUGS (1)
  1. NEXPLANON [Suspect]
     Active Substance: ETONOGESTREL
     Indication: CONTRACEPTION
     Dosage: UNK
     Route: 059
     Dates: start: 20150624, end: 2016

REACTIONS (6)
  - Surgery [Unknown]
  - Unintended pregnancy [Recovered/Resolved]
  - Weight increased [Unknown]
  - Inappropriate schedule of drug administration [Unknown]
  - Complication associated with device [Recovered/Resolved]
  - Pregnancy with implant contraceptive [Recovered/Resolved]

NARRATIVE: CASE EVENT DATE: 2015
